FAERS Safety Report 4588878-2 (Version None)
Quarter: 2005Q1

REPORT INFORMATION
  Report Type: 
  Country: None (occurrence: None)
  Receive Date: 20050216
  Receipt Date: 20050204
  Transmission Date: 20050727
  Serious: Yes (Hospitalization)
  Sender: FDA-Public Use
  Company Number: MEDI-0002843

PATIENT
  Age: 66 Year
  Sex: Female
  Weight: 76.2043 kg

DRUGS (14)
  1. ETHYOL [Suspect]
     Indication: RADIOTHERAPY
     Dosage: 500 MG, SUBCUTANEOUS
     Route: 058
     Dates: start: 20041207, end: 20041223
  2. RADIATION THERAPY [Concomitant]
  3. CHEMOTHERAPY [Concomitant]
  4. KYTRIL [Concomitant]
  5. LITHIUM (LITHIUM) [Concomitant]
  6. PAMELOR [Concomitant]
  7. REGLAN [Concomitant]
  8. LEXAPRO [Concomitant]
  9. RITALIN [Concomitant]
  10. PREVACID [Concomitant]
  11. ACETYLSALICYLIC ACID SRT [Concomitant]
  12. VISKEN [Concomitant]
  13. DARVOCET [Concomitant]
  14. TUS-IONEX (PHENYLTOLOXAMINE, HYDROCODONE) [Concomitant]

REACTIONS (3)
  - CANDIDIASIS [None]
  - PNEUMONIA [None]
  - PURPURA [None]
